FAERS Safety Report 4887588-1 (Version None)
Quarter: 2006Q1

REPORT INFORMATION
  Report Type: 
  Country: None (occurrence: None)
  Receive Date: 20060119
  Receipt Date: 20060119
  Transmission Date: 20060701
  Serious: Yes (Hospitalization)
  Sender: FDA-Public Use
  Company Number: None

PATIENT
  Age: 80 Year
  Sex: Male
  Weight: 87.9978 kg

DRUGS (5)
  1. SPIRONOLACTONE [Suspect]
     Indication: CARDIAC FAILURE CONGESTIVE
     Dosage: 25 MG DAILY
     Dates: start: 20040701, end: 20051001
  2. SPIRONOLACTONE [Suspect]
     Indication: HYPERTENSION
     Dosage: 25 MG DAILY
     Dates: start: 20040701, end: 20051001
  3. SPIRONOLACTONE [Suspect]
     Indication: OEDEMA
     Dosage: 25 MG DAILY
     Dates: start: 20040701, end: 20051001
  4. LISINOPRIL [Suspect]
     Indication: CARDIAC FAILURE CONGESTIVE
     Dosage: 40 MG DAILY
     Dates: start: 20050721, end: 20051001
  5. LISINOPRIL [Suspect]
     Indication: HYPERTENSION
     Dosage: 40 MG DAILY
     Dates: start: 20050721, end: 20051001

REACTIONS (3)
  - DEHYDRATION [None]
  - HYPOKALAEMIA [None]
  - RENAL FAILURE [None]
